FAERS Safety Report 8247415-1 (Version None)
Quarter: 2012Q1

REPORT INFORMATION
  Report Type: 
  Country: None (occurrence: None)
  Receive Date: 20120330
  Receipt Date: 20120323
  Transmission Date: 20120608
  Serious: Yes (Hospitalization, Other)
  Sender: FDA-Public Use
  Company Number: US-ABBOTT-12P-163-0918013-00

PATIENT
  Sex: Male
  Weight: 99.88 kg

DRUGS (6)
  1. NIASPAN [Suspect]
     Indication: BLOOD TRIGLYCERIDES INCREASED
     Route: 048
  2. NIASPAN [Suspect]
     Indication: BLOOD CHOLESTEROL INCREASED
  3. TRICOR [Concomitant]
     Indication: BLOOD TRIGLYCERIDES INCREASED
     Dosage: ON/OFF, RECEIVES SAMPLES FROM PHYSICIAN
  4. NOVOLOG [Concomitant]
     Indication: DIABETES MELLITUS
  5. LEVAMIN [Concomitant]
     Indication: DIABETES MELLITUS
  6. GEMFIBROZIL [Concomitant]
     Indication: PRODUCT USED FOR UNKNOWN INDICATION

REACTIONS (7)
  - ESCHERICHIA INFECTION [None]
  - BURNING SENSATION [None]
  - RECTAL HAEMORRHAGE [None]
  - TESTICULAR SWELLING [None]
  - FLUSHING [None]
  - COLON CANCER [None]
  - ERYTHEMA [None]
